FAERS Safety Report 5009602-5 (Version None)
Quarter: 2006Q2

REPORT INFORMATION
  Report Type: 
  Country: None (occurrence: None)
  Receive Date: 20060524
  Receipt Date: 20060518
  Transmission Date: 20061013
  Serious: Yes (Other)
  Sender: FDA-Public Use
  Company Number: US-JNJFOC-20060504728

PATIENT
  Sex: Female
  Weight: 68.04 kg

DRUGS (5)
  1. DURAGESIC-100 [Suspect]
     Route: 062
  2. DILANTIN [Concomitant]
     Route: 048
  3. KEPPRA [Concomitant]
     Route: 048
  4. ACTIQ [Concomitant]
     Indication: BREAKTHROUGH PAIN
     Route: 048
  5. OXYIR [Concomitant]
     Indication: BREAKTHROUGH PAIN
     Route: 048

REACTIONS (3)
  - APPLICATION SITE ERYTHEMA [None]
  - CONVULSION [None]
  - DEPRESSION [None]
